FAERS Safety Report 13049589 (Version 5)
Quarter: 2017Q1

REPORT INFORMATION
  Report Type: Spontaneous
  Country: DE (occurrence: DE)
  Receive Date: 20161221
  Receipt Date: 20170221
  Transmission Date: 20170428
  Serious: Yes (Death, Hospitalization, Other)
  Sender: FDA-Public Use
  Company Number: DE-SA-2016SA228104

PATIENT
  Age: 34 Year
  Sex: Male

DRUGS (6)
  1. PANTOPRAZOLE [Concomitant]
     Active Substance: PANTOPRAZOLE SODIUM
  2. TOPIRAMATE. [Concomitant]
     Active Substance: TOPIRAMATE
  3. MOCLOBEMIDE [Concomitant]
     Active Substance: MOCLOBEMIDE
  4. LEMTRADA [Suspect]
     Active Substance: ALEMTUZUMAB
     Indication: RELAPSING-REMITTING MULTIPLE SCLEROSIS
     Route: 042
     Dates: start: 201502, end: 201502
  5. PARACETAMOL [Concomitant]
     Active Substance: ACETAMINOPHEN
     Dosage: DOSAGE TEXT: 2 X 1 G
  6. LEMTRADA [Suspect]
     Active Substance: ALEMTUZUMAB
     Indication: RELAPSING-REMITTING MULTIPLE SCLEROSIS
     Route: 042
     Dates: start: 20160308, end: 20160310

REACTIONS (6)
  - Brain stem haemorrhage [Fatal]
  - Petechiae [Fatal]
  - Platelet count decreased [Fatal]
  - Immune thrombocytopenic purpura [Fatal]
  - Haemorrhage [Unknown]
  - Haematoma [Fatal]

NARRATIVE: CASE EVENT DATE: 20160929
